FAERS Safety Report 23534884 (Version 1)
Quarter: 2024Q1

REPORT INFORMATION
  Report Type: Spontaneous
  Country: US (occurrence: US)
  Receive Date: 20240217
  Receipt Date: 20240217
  Transmission Date: 20240410
  Serious: No
  Sender: FDA-Public Use
  Company Number: US-SA-SAC20240209000967

PATIENT
  Age: 34 Year
  Sex: Male
  Weight: 56.6 kg

DRUGS (1)
  1. DUPIXENT [Suspect]
     Active Substance: DUPILUMAB
     Indication: Illness
     Dosage: 300MG EVERY 2 WEEKS
     Route: 058

REACTIONS (2)
  - COVID-19 [Recovering/Resolving]
  - Pyrexia [Recovering/Resolving]

NARRATIVE: CASE EVENT DATE: 20240101
